FAERS Safety Report 17158109 (Version 1)
Quarter: 2019Q4

REPORT INFORMATION
  Report Type: Spontaneous
  Country: US (occurrence: US)
  Receive Date: 20191216
  Receipt Date: 20191216
  Transmission Date: 20200122
  Serious: Yes (Hospitalization)
  Sender: FDA-Public Use
  Company Number: US-BAYER-2019-218788

PATIENT
  Age: 60 Year
  Sex: Male

DRUGS (2)
  1. BETASERON [Suspect]
     Active Substance: INTERFERON BETA-1B
     Dosage: 0.3 MG
     Route: 058
     Dates: start: 201606
  2. BETASERON [Suspect]
     Active Substance: INTERFERON BETA-1B
     Dosage: 0.3 MG
     Route: 058
     Dates: start: 201605

REACTIONS (3)
  - Intestinal obstruction [None]
  - Colon cancer [None]
  - Ileostomy [None]

NARRATIVE: CASE EVENT DATE: 201908
